FAERS Safety Report 6784252-9 (Version None)
Quarter: 2010Q2

REPORT INFORMATION
  Report Type: 
  Country: None (occurrence: None)
  Receive Date: 20100617
  Receipt Date: 20100607
  Transmission Date: 20101027
  Serious: Yes (Other)
  Sender: FDA-Public Use
  Company Number: 2010TG0113

PATIENT
  Age: 74 Year
  Sex: Male

DRUGS (1)
  1. FENOFIBRATE [Suspect]
     Indication: HYPERLIPIDAEMIA
     Dosage: 200 MG, DAILY (15 DAYS PRIOR TO PRESENTING)

REACTIONS (12)
  - ALANINE AMINOTRANSFERASE INCREASED [None]
  - ASPARTATE AMINOTRANSFERASE INCREASED [None]
  - BLOOD ALBUMIN DECREASED [None]
  - BLOOD CALCIUM DECREASED [None]
  - BLOOD LACTATE DEHYDROGENASE INCREASED [None]
  - BLOOD PH DECREASED [None]
  - BLOOD POTASSIUM INCREASED [None]
  - HAEMOGLOBIN DECREASED [None]
  - PO2 DECREASED [None]
  - PROTEINURIA [None]
  - RENAL FAILURE ACUTE [None]
  - RHABDOMYOLYSIS [None]
